FAERS Safety Report 8977367 (Version 1)
Quarter: 2012Q4

REPORT INFORMATION
  Report Type: 
  Country: US (occurrence: US)
  Receive Date: 20121219
  Receipt Date: 20121219
  Transmission Date: 20130627
  Serious: No
  Sender: FDA-Public Use
  Company Number: US-B.I. PHARMACEUTICALS,INC./RIDGEFIELD-2012-BI-03003BP

PATIENT
  Sex: Female
  Weight: 45 kg

DRUGS (4)
  1. SPIRIVA [Suspect]
     Indication: BRONCHITIS CHRONIC
     Dosage: 18 mcg
     Route: 048
     Dates: start: 2010
  2. VITAMINS [Concomitant]
     Route: 048
  3. CALCIUM [Concomitant]
     Route: 048
  4. VENTOLIN [Concomitant]
     Route: 055

REACTIONS (4)
  - Dysuria [Not Recovered/Not Resolved]
  - Dry eye [Not Recovered/Not Resolved]
  - Dry mouth [Not Recovered/Not Resolved]
  - Eye discharge [Not Recovered/Not Resolved]
